FAERS Safety Report 21453515 (Version 1)
Quarter: 2022Q4

REPORT INFORMATION
  Report Type: Spontaneous
  Country: IN (occurrence: IN)
  Receive Date: 20221013
  Receipt Date: 20221013
  Transmission Date: 20230113
  Serious: Yes (Hospitalization)
  Sender: FDA-Public Use
  Company Number: IN-PFIZER INC-2021195086

PATIENT
  Age: 55 Year
  Sex: Female

DRUGS (7)
  1. LORLATINIB [Suspect]
     Active Substance: LORLATINIB
     Indication: Lung carcinoma cell type unspecified stage IV
     Dosage: 100 MG, 1X/DAY
     Route: 048
     Dates: start: 20200801
  2. LORLATINIB [Suspect]
     Active Substance: LORLATINIB
     Dosage: 100 MG, 1X/DAY
     Route: 048
     Dates: start: 20200805
  3. COBADEX FORTE [Concomitant]
     Dosage: 1 CAP ONCE A DAY TO CONTINUE
  4. CALCIUM\CHOLECALCIFEROL [Concomitant]
     Active Substance: CALCIUM\CHOLECALCIFEROL
     Dosage: 500 MG, 1 TAB ONCE A DAY TO CONTINUE
  5. DOMPERIDONE\RABEPRAZOLE [Concomitant]
     Active Substance: DOMPERIDONE\RABEPRAZOLE
     Dosage: 1 DALLY
  6. FEFOL Z [Concomitant]
     Dosage: 1 DAILY BD
  7. ULTRACET [Concomitant]
     Active Substance: ACETAMINOPHEN\TRAMADOL HYDROCHLORIDE
     Dosage: 1 SOS FOR PAIN

REACTIONS (6)
  - Pain [Unknown]
  - Dyspnoea [Unknown]
  - Asthenia [Unknown]
  - Neoplasm progression [Unknown]
  - Muscular weakness [Unknown]
  - Pleural effusion [Unknown]

NARRATIVE: CASE EVENT DATE: 20210101
